FAERS Safety Report 6637696-X (Version None)
Quarter: 2010Q1

REPORT INFORMATION
  Report Type: 
  Country: None (occurrence: None)
  Receive Date: 20100312
  Receipt Date: 20100226
  Transmission Date: 20100710
  Serious: Yes (Other)
  Sender: FDA-Public Use
  Company Number: 2010MS000011

PATIENT
  Age: 32 Year
  Sex: Female

DRUGS (4)
  1. SIROLIMUS [Suspect]
     Indication: UVEITIS
     Dosage: 16 UL INTRAVITREAL
     Dates: start: 20091214
  2. SIROLIMUS [Suspect]
     Indication: UVEITIS
     Dosage: 16 UL INTRAVITREAL
     Dates: start: 20100215
  3. PREDNISONE [Concomitant]
  4. PROTONIX [Concomitant]

REACTIONS (3)
  - CATARACT [None]
  - LENTICULAR OPACITIES [None]
  - VISUAL ACUITY REDUCED [None]
